FAERS Safety Report 8458474-5 (Version None)
Quarter: 2012Q2

REPORT INFORMATION
  Report Type: 
  Country: None (occurrence: None)
  Receive Date: 20120615
  Receipt Date: 20120604
  Transmission Date: 20120825
  Serious: Yes (Other)
  Sender: FDA-Public Use
  Company Number: 2012P1037918

PATIENT
  Age: 61 Year
  Sex: Female

DRUGS (9)
  1. KETAMINE HCL [Suspect]
     Indication: HERPES ZOSTER
     Dosage: 1 MG;ED
  2. KETAMINE HCL [Suspect]
     Indication: PAIN
     Dosage: 1 MG;ED
  3. FAMCICLOVIR [Concomitant]
  4. TRAMADOL/ACETAMINOPHEN TABLET [Concomitant]
  5. MORPHINE [Suspect]
     Indication: PAIN
     Dosage: 0.2 MG;QH;ED ; 0.4 MG;QH;ED
  6. MORPHINE [Suspect]
     Indication: HERPES ZOSTER
     Dosage: 0.2 MG;QH;ED ; 0.4 MG;QH;ED
  7. ROPIVACAINE HYDROCHLORIDE [Suspect]
     Indication: PAIN
     Dosage: 4 ML;QH;ED
  8. ROPIVACAINE HYDROCHLORIDE [Suspect]
     Indication: HERPES ZOSTER
     Dosage: 4 ML;QH;ED
  9. PREGABALIN [Concomitant]

REACTIONS (4)
  - MYOCLONUS [None]
  - MUSCLE TWITCHING [None]
  - DYSKINESIA [None]
  - NEUROTOXICITY [None]
